FAERS Safety Report 10620921 (Version 1)
Quarter: 2014Q4

REPORT INFORMATION
  Report Type: Spontaneous
  Country: AR (occurrence: AR)
  Receive Date: 20141202
  Receipt Date: 20141202
  Transmission Date: 20150529
  Serious: Yes (Congenital Anomaly, Other)
  Sender: FDA-Public Use
  Company Number: PHHY2014AR156584

PATIENT
  Weight: 1.55 kg

DRUGS (7)
  1. DILTIAZEM [Suspect]
     Active Substance: DILTIAZEM
     Route: 064
  2. AMLODIPINE [Suspect]
     Active Substance: AMLODIPINE BESYLATE
     Route: 064
  3. MEPREDNISONE [Suspect]
     Active Substance: MEPREDNISONE
     Route: 064
  4. MYCOPHENOLATE MOFETIL. [Suspect]
     Active Substance: MYCOPHENOLATE MOFETIL
     Route: 064
  5. TACROLIMUS. [Suspect]
     Active Substance: TACROLIMUS
     Route: 064
  6. ERYTHROPOIETIN [Suspect]
     Active Substance: ERYTHROPOIETIN
     Route: 064
  7. ENALAPRIL [Suspect]
     Active Substance: ENALAPRIL
     Route: 064

REACTIONS (7)
  - Dysmorphism [Unknown]
  - Premature baby [Unknown]
  - Low birth weight baby [Unknown]
  - Anomaly of external ear congenital [Unknown]
  - Foetal exposure during pregnancy [Unknown]
  - Oesophageal atresia [Unknown]
  - Atrial septal defect [Unknown]
